FAERS Safety Report 7053993-0 (Version None)
Quarter: 2010Q4

REPORT INFORMATION
  Report Type: 
  Country: None (occurrence: None)
  Receive Date: 20101020
  Receipt Date: 20100927
  Transmission Date: 20110411
  Serious: Yes (Hospitalization)
  Sender: FDA-Public Use
  Company Number: FR-MERCK-1010FRA00023

PATIENT
  Age: 83 Year
  Sex: Female

DRUGS (7)
  1. JANUVIA [Suspect]
     Indication: TYPE 2 DIABETES MELLITUS
     Route: 048
     Dates: start: 20100301, end: 20100510
  2. ROSUVASTATIN CALCIUM [Suspect]
     Indication: DYSLIPIDAEMIA
     Route: 048
     Dates: start: 20081017, end: 20100510
  3. ASPIRIN LYSINE [Concomitant]
     Indication: CARDIOVASCULAR EVENT PROPHYLAXIS
     Route: 065
     Dates: start: 20050101, end: 20100509
  4. ENALAPRIL MALEATE AND HYDROCHLOROTHIAZIDE [Concomitant]
     Indication: HYPERTENSION
     Route: 048
     Dates: start: 20050101, end: 20100510
  5. ACETAMINOPHEN [Concomitant]
     Indication: PAIN
     Route: 048
  6. REPAGLINIDE [Suspect]
     Indication: TYPE 2 DIABETES MELLITUS
     Route: 048
     Dates: start: 20051129, end: 20100510
  7. REPAGLINIDE [Suspect]
     Route: 048
     Dates: start: 20051129, end: 20100510

REACTIONS (1)
  - HEPATITIS [None]
